FAERS Safety Report 9252304 (Version 1)
Quarter: 2013Q1

REPORT INFORMATION
  Report Type: Spontaneous
  Country: US (occurrence: None)
  Receive Date: 20130305
  Receipt Date: 20130305
  Transmission Date: 20140127
  Serious: Yes (Hospitalization)
  Sender: FDA-Public Use
  Company Number: 163-21880-12083117

PATIENT
  Age: 62 Year
  Sex: Female

DRUGS (5)
  1. REVLIMID [Suspect]
     Indication: PLASMA CELL MYELOMA
     Route: 048
     Dates: start: 20120531
  2. AMLODIPINE BESYLATE(AMLODIPINE BESILATE) (UNKNOWN) [Concomitant]
  3. EPOGEN(EPOETIN ALFA) (UNKNOWN) [Concomitant]
  4. SENSIPAR(CINACALCET HYDROCHLORIDE) (UNKNOWN) [Concomitant]
  5. TEMAZEPAM(TEMAZEPAM) (UNKNOWN) [Concomitant]

REACTIONS (3)
  - Pulmonary oedema [None]
  - Dyspnoea [None]
  - Hypertension [None]
